FAERS Safety Report 7841234-3 (Version None)
Quarter: 2011Q4

REPORT INFORMATION
  Report Type: 
  Country: None (occurrence: None)
  Receive Date: 20111025
  Receipt Date: 20111018
  Transmission Date: 20120403
  Serious: Yes (Hospitalization, Other)
  Sender: FDA-Public Use
  Company Number: US-B.I. PHARMACEUTICALS,INC./RIDGEFIELD-2011-BP-08959BP

PATIENT
  Sex: Female

DRUGS (9)
  1. PRADAXA [Concomitant]
     Dosage: 300 MG
  2. FLOMAX [Suspect]
     Indication: URINARY RETENTION
     Dosage: 0.4 MG
     Route: 048
     Dates: start: 20090331
  3. MULTAQ [Concomitant]
     Dosage: 400 MG
  4. ASPIRIN [Concomitant]
     Dosage: 81 MG
  5. ANTIHYPERTENSIVE [Concomitant]
  6. LEVAQUIN [Concomitant]
  7. METOPROLOL TARTRATE [Concomitant]
     Indication: ATRIAL FIBRILLATION
     Dosage: 25 MG
     Route: 048
     Dates: start: 20080101
  8. XANAX [Concomitant]
     Indication: ANXIETY
     Dosage: 0.25 MG
  9. RAMIPRIL [Concomitant]
     Indication: HYPERTENSION
     Dosage: 10 MG
     Dates: start: 20080101

REACTIONS (2)
  - ULCER HAEMORRHAGE [None]
  - CEREBROVASCULAR ACCIDENT [None]
